FAERS Safety Report 11173020 (Version 2)
Quarter: 2015Q2

REPORT INFORMATION
  Report Type: Spontaneous
  Country: FR (occurrence: FR)
  Receive Date: 20150608
  Receipt Date: 20150615
  Transmission Date: 20150821
  Serious: Yes (Hospitalization)
  Sender: FDA-Public Use
  Company Number: FR-PFIZER INC-2015187196

PATIENT
  Age: 97 Year
  Sex: Female

DRUGS (5)
  1. PARACETAMOL [Concomitant]
     Active Substance: ACETAMINOPHEN
     Dosage: 1 G, SINGLE
     Dates: start: 20150520, end: 20150520
  2. COUMADINE [Concomitant]
     Active Substance: WARFARIN SODIUM
  3. NEURONTIN [Suspect]
     Active Substance: GABAPENTIN
     Indication: PAIN
     Dosage: 300 MG, SINGLE
     Route: 048
     Dates: start: 20150520, end: 20150520
  4. NOLVADEX [Concomitant]
     Active Substance: TAMOXIFEN CITRATE
     Dosage: 20 MG, UNK
  5. LASILIX [Concomitant]
     Active Substance: FUROSEMIDE
     Dosage: 20

REACTIONS (3)
  - Depressed level of consciousness [Recovered/Resolved]
  - Hypotonia [Recovered/Resolved]
  - Intentional product misuse [Recovered/Resolved]

NARRATIVE: CASE EVENT DATE: 20150520
